FAERS Safety Report 19399090 (Version 1)
Quarter: 2021Q2

REPORT INFORMATION
  Report Type: Spontaneous
  Country: NL (occurrence: DK)
  Receive Date: 20210610
  Receipt Date: 20210610
  Transmission Date: 20210717
  Serious: Yes (Hospitalization)
  Sender: FDA-Public Use
  Company Number: DK-FRESENIUS KABI-FK202105792

PATIENT
  Age: 76 Year
  Sex: Female
  Weight: 67 kg

DRUGS (3)
  1. BENZYLPENICILLIN SODIUM [Concomitant]
     Active Substance: PENICILLIN G SODIUM
     Indication: ARTHRITIS INFECTIVE
     Route: 065
     Dates: start: 20210419, end: 20210422
  2. VANCOMYCIN KABI (NOT SPECIFIED) [Suspect]
     Active Substance: VANCOMYCIN
     Indication: ARTHRITIS INFECTIVE
     Route: 042
     Dates: start: 20210419, end: 20210421
  3. OXYCODONE HYDROCHLORIDE. [Concomitant]
     Active Substance: OXYCODONE HYDROCHLORIDE
     Indication: PAIN
     Dosage: STRENGTH: 5 MG
     Route: 048
     Dates: start: 20210308

REACTIONS (1)
  - Renal failure [Not Recovered/Not Resolved]

NARRATIVE: CASE EVENT DATE: 202104
